FAERS Safety Report 15191858 (Version 1)
Quarter: 2018Q3

REPORT INFORMATION
  Report Type: Spontaneous
  Country: US (occurrence: US)
  Receive Date: 20180724
  Receipt Date: 20180724
  Transmission Date: 20181010
  Serious: Yes (Other)
  Sender: FDA-Public Use
  Company Number: None

PATIENT

DRUGS (1)
  1. RED DEVIL KRATOM WATER SOLUBLE CBD [Suspect]
     Active Substance: MITRAGYNINE\HERBALS
     Dates: start: 20180711, end: 20180712

REACTIONS (2)
  - Diarrhoea [None]
  - Physical product label issue [None]

NARRATIVE: CASE EVENT DATE: 20180712
